FAERS Safety Report 17873204 (Version 1)
Quarter: 2020Q2

REPORT INFORMATION
  Report Type: Spontaneous
  Country: US (occurrence: US)
  Receive Date: 20200608
  Receipt Date: 20200608
  Transmission Date: 20200714
  Serious: No
  Sender: FDA-Public Use
  Company Number: US-OSMOTICA_PHARMACEUTICAL_US_LLC-POI0573202000279

PATIENT
  Age: 60 Year
  Sex: Female

DRUGS (5)
  1. OSMOLEX ER [Suspect]
     Active Substance: AMANTADINE
     Indication: PARKINSON^S DISEASE
     Dosage: ONE 193 MG AND ONE 258 MG
     Dates: start: 20200329, end: 20200330
  2. OSMOLEX ER [Suspect]
     Active Substance: AMANTADINE
     Dates: start: 20200331, end: 202004
  3. OSMOLEX ER [Suspect]
     Active Substance: AMANTADINE
     Dates: start: 202004, end: 202004
  4. METFORMIN [Concomitant]
     Active Substance: METFORMIN HYDROCHLORIDE
     Indication: DIABETES MELLITUS
  5. OSMOLEX ER [Suspect]
     Active Substance: AMANTADINE
     Dates: start: 202004

REACTIONS (5)
  - Skin discolouration [Recovered/Resolved]
  - Generalised oedema [Recovered/Resolved]
  - Fatigue [Recovered/Resolved]
  - Accidental overdose [Recovered/Resolved]
  - Pain [Recovered/Resolved]

NARRATIVE: CASE EVENT DATE: 20200329
